FAERS Safety Report 24583300 (Version 1)
Quarter: 2024Q4

REPORT INFORMATION
  Report Type: Spontaneous
  Country: GR (occurrence: GR)
  Receive Date: 20241106
  Receipt Date: 20241106
  Transmission Date: 20250115
  Serious: Yes (Other)
  Sender: AMGEN
  Company Number: GR-AMGEN-GRCSP2024216104

PATIENT
  Age: 79 Year
  Sex: Male

DRUGS (8)
  1. FILGRASTIM [Suspect]
     Active Substance: FILGRASTIM
     Indication: Neutropenia
     Dosage: UNK
     Route: 065
  2. EPOETIN ALFA [Suspect]
     Active Substance: ERYTHROPOIETIN
     Indication: Anaemia
     Dosage: UNK
     Route: 065
  3. DEFERASIROX [Suspect]
     Active Substance: DEFERASIROX
     Indication: Thrombocytopenia
     Dosage: UNK
     Route: 065
  4. DEFERASIROX [Suspect]
     Active Substance: DEFERASIROX
     Indication: Anaemia
  5. LUSPATERCEPT [Concomitant]
     Active Substance: LUSPATERCEPT
     Indication: Myelodysplastic syndrome
     Dosage: 1 MILLIGRAM/KILOGRAM
     Route: 058
  6. LUSPATERCEPT [Concomitant]
     Active Substance: LUSPATERCEPT
     Dosage: 1.33 MILLIGRAM/KILOGRAM (TWO 21-DAY CYCLES)
     Route: 058
  7. AZACITIDINE [Concomitant]
     Active Substance: AZACITIDINE
     Dosage: UNK (FIVE CYCLES)
     Route: 065
  8. LENALIDOMIDE [Concomitant]
     Active Substance: LENALIDOMIDE
     Dosage: 10 MILLIGRAM, QD (21 DAYS IN 28-DAY CYCLES)

REACTIONS (2)
  - Pancytopenia [Not Recovered/Not Resolved]
  - Drug ineffective [Unknown]
